FAERS Safety Report 8876869 (Version 1)
Quarter: 2012Q4

REPORT INFORMATION
  Report Type: 
  Country: IT (occurrence: IT)
  Receive Date: 20121029
  Receipt Date: 20121029
  Transmission Date: 20130627
  Serious: Yes (Other)
  Sender: FDA-Public Use
  Company Number: IT-SANOFI-AVENTIS-2012SA078434

PATIENT
  Age: 71 Year
  Sex: Female

DRUGS (16)
  1. FLUOROURACIL [Suspect]
     Indication: RECTAL ADENOCARCINOMA
     Dosage: a bolus, on day 1, 2, 15 and 16, biweekly
     Route: 065
     Dates: start: 200702, end: 200708
  2. FLUOROURACIL [Suspect]
     Indication: LUNG METASTASES
     Dosage: a bolus, on day 1, 2, 15 and 16, biweekly
     Route: 065
     Dates: start: 200702, end: 200708
  3. FLUOROURACIL [Suspect]
     Indication: RECTAL ADENOCARCINOMA
     Dosage: as 24-hr infusion on day 1, 2, 15 and 16, biweekly
     Route: 065
     Dates: start: 200702, end: 200708
  4. FLUOROURACIL [Suspect]
     Indication: LUNG METASTASES
     Dosage: as 24-hr infusion on day 1, 2, 15 and 16, biweekly
     Route: 065
     Dates: start: 200702, end: 200708
  5. OXALIPLATIN [Suspect]
     Indication: RECTAL ADENOCARCINOMA
     Dosage: on day 2 and 16, biweekly
     Route: 065
     Dates: start: 200702, end: 200708
  6. OXALIPLATIN [Suspect]
     Indication: LUNG METASTASES
     Dosage: on day 2 and 16, biweekly
     Route: 065
     Dates: start: 200702, end: 200708
  7. GEMCITABINE HYDROCHLORIDE [Suspect]
     Indication: RECTAL ADENOCARCINOMA
     Dosage: on day 1 and 15, biweekly Dose:1 gram(s)/square meter
     Route: 065
     Dates: start: 200702, end: 200708
  8. GEMCITABINE HYDROCHLORIDE [Suspect]
     Indication: LUNG METASTASES
     Dosage: on day 1 and 15, biweekly Dose:1 gram(s)/square meter
     Route: 065
     Dates: start: 200702, end: 200708
  9. FOLINIC ACID [Suspect]
     Indication: RECTAL ADENOCARCINOMA
     Dosage: on day 1, 2, 15 and 16, biweekly
     Route: 065
     Dates: start: 200702, end: 200708
  10. FOLINIC ACID [Suspect]
     Indication: LUNG METASTASES
     Dosage: on day 1, 2, 15 and 16, biweekly
     Route: 065
     Dates: start: 200702, end: 200708
  11. GRANULOCYTE COLONY STIMULATING FACTOR [Suspect]
     Indication: RECTAL ADENOCARCINOMA
     Dosage: on days 3-7, biweekly
     Route: 058
     Dates: start: 200702, end: 200708
  12. GRANULOCYTE COLONY STIMULATING FACTOR [Suspect]
     Indication: LUNG METASTASES
     Dosage: on days 3-7, biweekly
     Route: 058
     Dates: start: 200702, end: 200708
  13. INTERLEUKIN-2/DIPTHERIA TOXIN FUSION PROTEIN [Suspect]
     Indication: RECTAL ADENOCARCINOMA
     Dosage: dose: 0.5 MIU twice a day for 5 days a week, 3 weekly
     Route: 058
     Dates: end: 200808
  14. INTERLEUKIN-2/DIPTHERIA TOXIN FUSION PROTEIN [Suspect]
     Indication: LUNG METASTASES
     Dosage: dose: 0.5 MIU twice a day for 5 days a week, 3 weekly
     Route: 058
     Dates: end: 200808
  15. INTERLEUKIN-2/DIPTHERIA TOXIN FUSION PROTEIN [Suspect]
     Indication: RECTAL ADENOCARCINOMA
     Dosage: dose: 0.5 X 10E6 IU, twice a day on day 8-14 and 17-29, biweekly
     Route: 058
     Dates: start: 200702, end: 200708
  16. INTERLEUKIN-2/DIPTHERIA TOXIN FUSION PROTEIN [Suspect]
     Indication: LUNG METASTASES
     Dosage: dose: 0.5 X 10E6 IU, twice a day on day 8-14 and 17-29, biweekly
     Route: 058
     Dates: start: 200702, end: 200708

REACTIONS (11)
  - Sjogren^s syndrome [Recovered/Resolved]
  - Arthralgia [Recovered/Resolved]
  - Joint stiffness [Recovered/Resolved]
  - Joint swelling [Recovered/Resolved]
  - Paraesthesia [Recovered/Resolved]
  - Myalgia [Recovered/Resolved]
  - Xerophthalmia [Recovered/Resolved]
  - Dry mouth [Recovered/Resolved]
  - Dry eye [Recovered/Resolved]
  - Lymphocyte count increased [Recovered/Resolved]
  - Lacrimation decreased [Recovered/Resolved]
